FAERS Safety Report 16599638 (Version 3)
Quarter: 2019Q3

REPORT INFORMATION
  Report Type: Report from Study
  Country: CA (occurrence: CA)
  Receive Date: 20190719
  Receipt Date: 20190812
  Transmission Date: 20191004
  Serious: Yes (Life-Threatening, Hospitalization)
  Sender: FDA-Public Use
  Company Number: CA-REGENERON PHARMACEUTICALS, INC.-2019-43304

PATIENT

DRUGS (2)
  1. CEMIPLIMAB [Suspect]
     Active Substance: CEMIPLIMAB
     Indication: SQUAMOUS CELL CARCINOMA OF SKIN
     Dosage: UNK
     Route: 042
     Dates: start: 20190605, end: 20190605
  2. CEMIPLIMAB [Suspect]
     Active Substance: CEMIPLIMAB
     Dosage: UNK
     Route: 042
     Dates: start: 20190801, end: 20190801

REACTIONS (9)
  - Malaise [Unknown]
  - Dry mouth [Not Recovered/Not Resolved]
  - Therapy cessation [Not Recovered/Not Resolved]
  - Weight decreased [Not Recovered/Not Resolved]
  - Transient ischaemic attack [Recovered/Resolved]
  - Haemoglobin abnormal [Recovered/Resolved]
  - Hospitalisation [Recovered/Resolved]
  - Asthenia [Unknown]
  - Fatigue [Unknown]

NARRATIVE: CASE EVENT DATE: 20190605
